FAERS Safety Report 8777925 (Version 1)
Quarter: 2012Q4

REPORT INFORMATION
  Report Type: 
  Country: US (occurrence: US)
  Receive Date: 20120912
  Receipt Date: 20120912
  Transmission Date: 20130627
  Serious: Yes (Hospitalization, Other)
  Sender: FDA-Public Use
  Company Number: US-PFIZER INC-2012224603

PATIENT
  Age: 46 Year
  Sex: Female
  Weight: 90.7 kg

DRUGS (3)
  1. LYRICA [Suspect]
     Indication: NEURALGIA
     Dosage: 150 mg, 2x/day
  2. NEURONTIN [Suspect]
     Indication: RESTLESS LEGS SYNDROME
     Dosage: 600 mg, 2x/day
  3. VALIUM [Concomitant]
     Indication: ANXIETY
     Dosage: 10 mg, 3x/day

REACTIONS (4)
  - Road traffic accident [Unknown]
  - Neck injury [Not Recovered/Not Resolved]
  - Back injury [Not Recovered/Not Resolved]
  - Pain [Not Recovered/Not Resolved]
